FAERS Safety Report 25299760 (Version 1)
Quarter: 2025Q2

REPORT INFORMATION
  Report Type: Spontaneous
  Country: DK (occurrence: DK)
  Receive Date: 20250512
  Receipt Date: 20250512
  Transmission Date: 20250716
  Serious: Yes (Other)
  Sender: CHEPLAPHARM
  Company Number: None

PATIENT
  Age: 47 Year
  Sex: Male

DRUGS (12)
  1. QUETIAPINE [Suspect]
     Active Substance: QUETIAPINE
     Indication: Antipsychotic therapy
     Dates: start: 2012
  2. DIMETHYLAMINODIPHENYLBUTENE HYDROCHLORIDE\KETOBEMIDONE HYDROCHLORIDE [Suspect]
     Active Substance: DIMETHYLAMINODIPHENYLBUTENE HYDROCHLORIDE\KETOBEMIDONE HYDROCHLORIDE
     Indication: Epilepsy
     Dates: start: 2012
  3. MORPHINE [Suspect]
     Active Substance: MORPHINE
     Indication: Pain
     Dates: start: 2012
  4. CYMBALTA [Suspect]
     Active Substance: DULOXETINE HYDROCHLORIDE
     Indication: Depression
     Dates: start: 2012
  5. SERTRALINE HYDROCHLORIDE [Suspect]
     Active Substance: SERTRALINE HYDROCHLORIDE
     Indication: Depression
     Dates: start: 2012
  6. GABAPENTIN [Suspect]
     Active Substance: GABAPENTIN
     Indication: Epilepsy
     Dates: start: 2012
  7. ATORVASTATIN [Suspect]
     Active Substance: ATORVASTATIN
     Indication: Blood cholesterol increased
     Dates: start: 2012
  8. CITALOPRAM [Suspect]
     Active Substance: CITALOPRAM
     Indication: Depression
  9. IBUPROFEN [Suspect]
     Active Substance: IBUPROFEN
     Indication: Product used for unknown indication
     Dates: start: 2012
  10. ANAFRANIL [Suspect]
     Active Substance: CLOMIPRAMINE HYDROCHLORIDE
     Indication: Depression
     Dates: start: 2012
  11. PANTOPRAZOLE SODIUM [Suspect]
     Active Substance: PANTOPRAZOLE SODIUM
     Indication: Antacid therapy
     Dates: start: 2012
  12. MIRTAZAPINE [Suspect]
     Active Substance: MIRTAZAPINE
     Indication: Depression
     Dates: start: 2012

REACTIONS (12)
  - Gastric ulcer [Unknown]
  - Pain [Unknown]
  - Gastrointestinal disorder [Unknown]
  - Dyschezia [Unknown]
  - Constipation [Unknown]
  - Intestinal polyp [Unknown]
  - Discomfort [Unknown]
  - Haemorrhoids [Unknown]
  - Defaecation disorder [Unknown]
  - Decreased appetite [Unknown]
  - Quality of life decreased [Unknown]
  - Weight decreased [Unknown]
